FAERS Safety Report 19716557 (Version 1)
Quarter: 2021Q3

REPORT INFORMATION
  Report Type: Spontaneous
  Country: US (occurrence: US)
  Receive Date: 20210819
  Receipt Date: 20210819
  Transmission Date: 20211014
  Serious: No
  Sender: FDA-Public Use
  Company Number: US-CELLTRION INC.-2021US009104

PATIENT

DRUGS (6)
  1. TRUXIMA [Suspect]
     Active Substance: RITUXIMAB-ABBS
     Indication: HAIRY CELL LEUKAEMIA
     Dosage: 830 MG 1, 8, 15, 22 Q28D
     Dates: start: 20210524
  2. TRUXIMA [Suspect]
     Active Substance: RITUXIMAB-ABBS
     Dosage: 830 MG 1, 8, 15, 22 Q28D
     Dates: start: 20210623
  3. TRUXIMA [Suspect]
     Active Substance: RITUXIMAB-ABBS
     Dosage: 830 MG 1, 8, 15, 22 Q28D
     Dates: start: 20210609
  4. TRUXIMA [Suspect]
     Active Substance: RITUXIMAB-ABBS
     Dosage: 830 MG 1, 8, 15, 22 Q28D
     Dates: start: 20210630
  5. TRUXIMA [Suspect]
     Active Substance: RITUXIMAB-ABBS
     Dosage: 830 MG 1, 8, 15, 22 Q28D
     Dates: start: 20210602
  6. TRUXIMA [Suspect]
     Active Substance: RITUXIMAB-ABBS
     Dosage: 830 MG 1, 8, 15, 22 Q28D
     Dates: start: 20210616

REACTIONS (1)
  - Off label use [Unknown]

NARRATIVE: CASE EVENT DATE: 20210524
